FAERS Safety Report 16704123 (Version 2)
Quarter: 2019Q3

REPORT INFORMATION
  Report Type: Spontaneous
  Country: US (occurrence: US)
  Receive Date: 20190814
  Receipt Date: 20190912
  Transmission Date: 20191004
  Serious: No
  Sender: FDA-Public Use
  Company Number: US-ASTRAZENECA-2019SF05812

PATIENT
  Sex: Male
  Weight: 88.5 kg

DRUGS (3)
  1. BYDUREON BCISE [Suspect]
     Active Substance: EXENATIDE
     Indication: TYPE 2 DIABETES MELLITUS
     Route: 058
     Dates: start: 2018
  2. BYDUREON BCISE [Suspect]
     Active Substance: EXENATIDE
     Indication: BLOOD DISORDER
     Route: 058
     Dates: start: 2018
  3. TRULICITY [Concomitant]
     Active Substance: DULAGLUTIDE

REACTIONS (4)
  - Product solubility abnormal [Unknown]
  - Gastric disorder [Unknown]
  - Device issue [Unknown]
  - Wrong technique in device usage process [Unknown]
